FAERS Safety Report 9644996 (Version 1)
Quarter: 2013Q4

REPORT INFORMATION
  Report Type: Spontaneous
  Country: US (occurrence: US)
  Receive Date: 20131025
  Receipt Date: 20131025
  Transmission Date: 20140711
  Serious: No
  Sender: FDA-Public Use
  Company Number: US-PFIZER INC-2013302971

PATIENT
  Sex: 0

DRUGS (1)
  1. RELPAX [Suspect]
     Dosage: UNK
     Route: 048

REACTIONS (4)
  - Hypersensitivity [Unknown]
  - Wheezing [Unknown]
  - Fatigue [Unknown]
  - Nausea [Unknown]
